FAERS Safety Report 17434101 (Version 1)
Quarter: 2020Q1

REPORT INFORMATION
  Report Type: Spontaneous
  Country: US (occurrence: US)
  Receive Date: 20200218
  Receipt Date: 20200218
  Transmission Date: 20200409
  Serious: Yes (Other)
  Sender: FDA-Public Use
  Company Number: None

PATIENT

DRUGS (2)
  1. LATANAPROST .005% [Suspect]
     Active Substance: LATANOPROST
  2. TRAVOPROST .2% [Suspect]
     Active Substance: TRAVOPROST

REACTIONS (1)
  - Drug ineffective [None]
